FAERS Safety Report 6595065-5 (Version None)
Quarter: 2010Q1

REPORT INFORMATION
  Report Type: 
  Country: None (occurrence: None)
  Receive Date: 20100222
  Receipt Date: 20100210
  Transmission Date: 20100710
  Serious: Yes (Death, Hospitalization)
  Sender: FDA-Public Use
  Company Number: FR-GENENTECH-289902

PATIENT
  Sex: Male

DRUGS (10)
  1. RITUXIMAB [Suspect]
     Indication: CHRONIC LYMPHOCYTIC LEUKAEMIA
     Dosage: 500 MG, QD
     Route: 041
     Dates: start: 20090604
  2. RITUXIMAB [Suspect]
     Dosage: 920 MG, QD
     Route: 041
     Dates: start: 20090702
  3. RITUXIMAB [Suspect]
     Dosage: 920 MG, QD
     Route: 041
     Dates: start: 20090716, end: 20090716
  4. RITUXIMAB [Suspect]
     Dosage: 500 MG, QD
     Route: 041
     Dates: start: 20090804
  5. CYCLOPHOSPHAMIDE [Suspect]
     Indication: NEOPLASM MALIGNANT
     Dosage: 50 MG, QD
     Route: 002
     Dates: start: 20090605
  6. CYCLOPHOSPHAMIDE [Suspect]
     Dosage: 450 MG, QD
     Route: 002
     Dates: start: 20090702, end: 20090704
  7. CYCLOPHOSPHAMIDE [Suspect]
     Dosage: 50 MG, QD
     Route: 002
     Dates: start: 20090706
  8. FLUDARABINE [Suspect]
     Indication: CHRONIC LYMPHOCYTIC LEUKAEMIA
     Dosage: UNK
     Route: 002
     Dates: start: 20090605
  9. FLUDARABINE [Suspect]
     Dosage: 70 MG, QD
     Route: 002
     Dates: start: 20090702, end: 20090704
  10. FLUDARABINE [Suspect]
     Dosage: UNK
     Route: 002
     Dates: start: 20090706

REACTIONS (2)
  - FEBRILE NEUTROPENIA [None]
  - HISTIOCYTOSIS HAEMATOPHAGIC [None]
